FAERS Safety Report 8919270 (Version 3)
Quarter: 2013Q1

REPORT INFORMATION
  Report Type: Spontaneous
  Country: US (occurrence: US)
  Receive Date: 20121121
  Receipt Date: 20130122
  Transmission Date: 20140127
  Serious: Yes (Hospitalization, Other)
  Sender: FDA-Public Use
  Company Number: US-PFIZER INC-2012287143

PATIENT
  Age: 22 Year
  Sex: Female
  Weight: 74.83 kg

DRUGS (2)
  1. DEPO-PROVERA [Suspect]
     Indication: CONTRACEPTION
     Dosage: UNK
     Route: 030
  2. DEPO-PROVERA [Suspect]
     Dosage: 150 MG, EVERY 3 MONTHS (EVERY TWELVE WEEKS)
     Route: 030
     Dates: start: 20111109

REACTIONS (1)
  - Myositis [Recovered/Resolved]
